FAERS Safety Report 10520854 (Version 4)
Quarter: 2014Q4

REPORT INFORMATION
  Report Type: Report from Study
  Country: MX (occurrence: MX)
  Receive Date: 20141015
  Receipt Date: 20141205
  Transmission Date: 20150528
  Serious: Yes (Other)
  Sender: FDA-Public Use
  Company Number: PHHY2014MX134100

PATIENT
  Age: 71 Year
  Sex: Female
  Weight: 60 kg

DRUGS (5)
  1. ASPIRIN PROTECT [Concomitant]
     Active Substance: ASPIRIN
     Indication: PRODUCT USED FOR UNKNOWN INDICATION
     Dosage: UNK DF, UNK
     Route: 065
  2. CO-DIOVAN [Suspect]
     Active Substance: HYDROCHLOROTHIAZIDE\VALSARTAN
     Indication: HYPERTENSION
     Dosage: 1 DF (80/12.5 MG), QD
     Route: 048
     Dates: start: 201201
  3. CELEBREX [Concomitant]
     Active Substance: CELECOXIB
     Indication: ANTIINFLAMMATORY THERAPY
     Dosage: UNK DF, Q12H
     Route: 065
     Dates: start: 20140823, end: 20140902
  4. LYRICA [Concomitant]
     Active Substance: PREGABALIN
     Indication: NERVOUS SYSTEM DISORDER
     Dosage: 75 MG, QD
     Route: 065
     Dates: start: 201408, end: 201409
  5. CO-DIOVAN [Suspect]
     Active Substance: HYDROCHLOROTHIAZIDE\VALSARTAN
     Dosage: UNK DF, UNK
     Route: 048
     Dates: start: 20141114

REACTIONS (8)
  - Neuropathy peripheral [Not Recovered/Not Resolved]
  - Gait disturbance [Not Recovered/Not Resolved]
  - Bronchitis [Recovering/Resolving]
  - General physical health deterioration [Not Recovered/Not Resolved]
  - Muscular weakness [Unknown]
  - Bone neoplasm [Recovered/Resolved]
  - Radiculitis [Not Recovered/Not Resolved]
  - Cough [Recovering/Resolving]

NARRATIVE: CASE EVENT DATE: 201408
